FAERS Safety Report 18286758 (Version 1)
Quarter: 2020Q3

REPORT INFORMATION
  Report Type: Spontaneous
  Country: PT (occurrence: PT)
  Receive Date: 20200921
  Receipt Date: 20200921
  Transmission Date: 20201103
  Serious: Yes (Other)
  Sender: FDA-Public Use
  Company Number: PT-BEH-2020122525

PATIENT
  Age: 68 Year
  Sex: Male

DRUGS (2)
  1. RESPREEZA [Suspect]
     Active Substance: .ALPHA.1-PROTEINASE INHIBITOR HUMAN
     Route: 042
  2. RESPREEZA [Suspect]
     Active Substance: .ALPHA.1-PROTEINASE INHIBITOR HUMAN
     Route: 042

REACTIONS (8)
  - Respiratory disorder [Unknown]
  - Abdominal pain [Unknown]
  - Blood bilirubin abnormal [Unknown]
  - Abdominal distension [Unknown]
  - Fatigue [Unknown]
  - Hepatic function abnormal [Unknown]
  - Dyspepsia [Unknown]
  - Dyspnoea [Unknown]
